FAERS Safety Report 6169638-8 (Version None)
Quarter: 2009Q2

REPORT INFORMATION
  Report Type: 
  Country: None (occurrence: None)
  Receive Date: 20090428
  Receipt Date: 20090421
  Transmission Date: 20091009
  Serious: Yes (Other)
  Sender: FDA-Public Use
  Company Number: US-BAYER-200917150NA

PATIENT
  Age: 21 Year
  Sex: Female
  Weight: 62 kg

DRUGS (1)
  1. MIRENA [Suspect]
     Indication: CONTRACEPTION
     Dosage: CONTINUOUS
     Route: 015
     Dates: start: 20081021, end: 20090319

REACTIONS (3)
  - ECTOPIC PREGNANCY [None]
  - ECTOPIC PREGNANCY WITH INTRAUTERINE DEVICE [None]
  - OVARIAN CYST [None]
